FAERS Safety Report 11293224 (Version 1)
Quarter: 2015Q3

REPORT INFORMATION
  Report Type: Spontaneous
  Country: FR (occurrence: FR)
  Receive Date: 20150722
  Receipt Date: 20150722
  Transmission Date: 20151125
  Serious: Yes (Other)
  Sender: FDA-Public Use
  Company Number: FR-MYLANLABS-2015M1024102

PATIENT

DRUGS (1)
  1. NICARDIPINE [Suspect]
     Active Substance: NICARDIPINE
     Indication: CERVIX CERCLAGE PROCEDURE
     Route: 048

REACTIONS (3)
  - Maternal exposure during pregnancy [Recovered/Resolved]
  - Acute pulmonary oedema [Unknown]
  - Premature delivery [Unknown]
